FAERS Safety Report 9165702 (Version 5)
Quarter: 2014Q1

REPORT INFORMATION
  Report Type: Spontaneous
  Country: US (occurrence: None)
  Receive Date: 20130228
  Receipt Date: 20140325
  Transmission Date: 20141002
  Serious: Yes (Hospitalization, Other)
  Sender: FDA-Public Use
  Company Number: JPI-P-029932

PATIENT
  Age: 59 Year
  Sex: Female
  Weight: 45.5 kg

DRUGS (14)
  1. XYREM [Suspect]
     Indication: NARCOLEPSY
     Route: 048
     Dates: start: 20070214
  2. XYREM [Suspect]
     Indication: SOMNOLENCE
     Route: 048
     Dates: start: 20070214
  3. XYREM [Suspect]
     Indication: SLEEP DISORDER
     Route: 048
     Dates: start: 20070214
  4. BUPROPION HYDROCHLORIDE [Concomitant]
  5. CLONAZEPAM (CLONAZEPAM) (CLONAZEPAM) [Concomitant]
  6. LISINOPRIL (LISINOPRIL) [Concomitant]
  7. ADDERALL (AMFETAMINE ASPARTATE, AMFETAMINE SULFATE, DEXAMFETAMINE SACCHARATE, DEXAMFETAMINE SULFATE)? [Concomitant]
  8. ACETYLSALICYLIC ACID (ACETYLSALICYLIC ACID) [Concomitant]
  9. LEVOTHYROXINE (LEVOTHYROXINE SODIUM) [Concomitant]
  10. GEODON (ZIPRASIDONE HYDROCHLORIDE) [Concomitant]
  11. CYTOTEC (MISOPROSTOL) [Concomitant]
  12. OXYMORPHONE (OXYMORPHONE) [Concomitant]
  13. SYNTHROID (LEVOTHYROXINE SODIUM) [Concomitant]
  14. OPANA (OXYMORPHONE HYDROCHLORIDE) [Concomitant]

REACTIONS (27)
  - Somnambulism [None]
  - Fall [None]
  - Humerus fracture [None]
  - Hypothyroidism [None]
  - Insomnia [None]
  - Hypothermia [None]
  - Condition aggravated [None]
  - Feeling abnormal [None]
  - Feeling cold [None]
  - Thrombocytopenia [None]
  - Disorientation [None]
  - Hyperkalaemia [None]
  - Treatment noncompliance [None]
  - Sleep attacks [None]
  - Somnolence [None]
  - Hypersomnia [None]
  - Confusional state [None]
  - Memory impairment [None]
  - Incorrect dose administered [None]
  - Balance disorder [None]
  - Dysarthria [None]
  - Bradyphrenia [None]
  - Mental impairment [None]
  - Erythromelalgia [None]
  - Aortic arteriosclerosis [None]
  - Syncope [None]
  - Constipation [None]
